FAERS Safety Report 5015520-9 (Version None)
Quarter: 2006Q2

REPORT INFORMATION
  Report Type: 
  Country: None (occurrence: None)
  Receive Date: 20060601
  Receipt Date: 20060131
  Transmission Date: 20061013
  Serious: Yes (Hospitalization, Other)
  Sender: FDA-Public Use
  Company Number: US-AMGEN-KDL167097

PATIENT
  Sex: Male
  Weight: 51.3 kg

DRUGS (7)
  1. ENBREL [Suspect]
     Indication: RHEUMATOID ARTHRITIS
     Route: 058
     Dates: start: 20050405, end: 20051128
  2. TYLENOL (GELTAB) [Concomitant]
  3. CALCIUM GLUCONATE [Concomitant]
  4. VITAMIN CAP [Concomitant]
  5. ACTONEL [Concomitant]
  6. CLARITIN-D [Concomitant]
  7. FLONASE [Concomitant]

REACTIONS (7)
  - CHEST X-RAY ABNORMAL [None]
  - HISTOPLASMOSIS DISSEMINATED [None]
  - HYPOTHYROIDISM [None]
  - PANCYTOPENIA [None]
  - SINUS POLYP [None]
  - SINUSITIS [None]
  - TACHYCARDIA [None]
